FAERS Safety Report 10161708 (Version 1)
Quarter: 2014Q2

REPORT INFORMATION
  Report Type: Spontaneous
  Country: GB (occurrence: None)
  Receive Date: 20140507
  Receipt Date: 20140507
  Transmission Date: 20141212
  Serious: Yes (Other)
  Sender: FDA-Public Use
  Company Number: AUR-APL-2014-05290

PATIENT
  Age: 73 Year
  Sex: Female

DRUGS (4)
  1. BISOPROLOL (BISOPROLOL) [Suspect]
     Indication: HYPERTENSION
     Route: 048
     Dates: start: 2010, end: 2014
  2. ATENOLOL (ATENOLOL) [Suspect]
     Indication: HYPERTENSION
     Route: 048
     Dates: start: 2014
  3. BENDROFLUMETHIAZIDE (BENDROFLUMETHIAZIDE) [Concomitant]
  4. RAMIPRIL (RAMIPRIL) [Concomitant]

REACTIONS (3)
  - Nail disorder [None]
  - Dyspnoea [None]
  - Alopecia [None]
